FAERS Safety Report 13362927 (Version 1)
Quarter: 2017Q1

REPORT INFORMATION
  Report Type: Spontaneous
  Country: US (occurrence: None)
  Receive Date: 20170322
  Receipt Date: 20170322
  Transmission Date: 20170429
  Serious: Yes (Hospitalization)
  Sender: FDA-Public Use
  Company Number: 2017UCU075000010

PATIENT
  Age: 35 Year
  Sex: Female
  Weight: 63.05 kg

DRUGS (11)
  1. PROMETHAZINE [Suspect]
     Active Substance: PROMETHAZINE\PROMETHAZINE HYDROCHLORIDE
  2. SINGULAIR [Concomitant]
     Active Substance: MONTELUKAST SODIUM
  3. SPIRIVA [Concomitant]
     Active Substance: TIOTROPIUM BROMIDE MONOHYDRATE
  4. GABAPENIN [Concomitant]
  5. KEPPRA [Suspect]
     Active Substance: LEVETIRACETAM
  6. CIMZIA [Suspect]
     Active Substance: CERTOLIZUMAB PEGOL
     Indication: CROHN^S DISEASE
     Dates: start: 20150312
  7. ZOFRAN [Suspect]
     Active Substance: ONDANSETRON HYDROCHLORIDE
  8. LEVAQUIN [Concomitant]
     Active Substance: LEVOFLOXACIN
  9. VIPMAT [Concomitant]
  10. ADALIMUMAB [Concomitant]
     Active Substance: ADALIMUMAB
  11. SYMBICORT [Concomitant]
     Active Substance: BUDESONIDE\FORMOTEROL FUMARATE DIHYDRATE

REACTIONS (1)
  - Impaired gastric emptying [None]

NARRATIVE: CASE EVENT DATE: 20150406
